FAERS Safety Report 6278069-1 (Version None)
Quarter: 2009Q3

REPORT INFORMATION
  Report Type: 
  Country: None (occurrence: None)
  Receive Date: 20090722
  Receipt Date: 20090717
  Transmission Date: 20100115
  Serious: Yes (Death, Other)
  Sender: FDA-Public Use
  Company Number: PHHY2009BR29736

PATIENT
  Sex: Male

DRUGS (2)
  1. STALEVO 100 [Suspect]
     Indication: PARKINSON'S DISEASE
     Dosage: 1 DF, QD
     Route: 048
     Dates: start: 20090521
  2. PROLOPA [Concomitant]
     Indication: PARKINSON'S DISEASE
     Dosage: 0.5 DF, Q4H
     Route: 048

REACTIONS (4)
  - DECREASED APPETITE [None]
  - DYSPNOEA [None]
  - HYPOTENSION [None]
  - PNEUMONIA [None]
